FAERS Safety Report 18237867 (Version 1)
Quarter: 2020Q3

REPORT INFORMATION
  Report Type: Spontaneous
  Country: JP (occurrence: JP)
  Receive Date: 20200907
  Receipt Date: 20200907
  Transmission Date: 20201103
  Serious: Yes (Other)
  Sender: FDA-Public Use
  Company Number: JP-SUN PHARMACEUTICAL INDUSTRIES LTD-2020RR-260324

PATIENT
  Age: 5 Decade
  Sex: Female

DRUGS (7)
  1. OXALIPLATIN. [Suspect]
     Active Substance: OXALIPLATIN
     Indication: NEOPLASM RECURRENCE
     Dosage: 100 MILLIGRAM/SQ. METER, DAY 1, 5 COURSES
     Route: 065
  2. 5?FU [Suspect]
     Active Substance: FLUOROURACIL
     Indication: SQUAMOUS CELL CARCINOMA
     Dosage: 400 MILLIGRAM/SQ. METER, 3 COURSES
     Route: 065
  3. TS?1 [Suspect]
     Active Substance: GIMERACIL\OTERACIL\TEGAFUR
     Indication: NEOPLASM RECURRENCE
     Dosage: 100 MILLIGRAM/SQ. METER, DAYS 1?14, 5 COURSES
     Route: 065
  4. CALCIUM FOLINAT [Suspect]
     Active Substance: LEUCOVORIN CALCIUM
     Indication: SQUAMOUS CELL CARCINOMA
     Dosage: 200 MILLIGRAM/SQ. METER, 3 COURSES
     Route: 065
  5. OXALIPLATIN. [Suspect]
     Active Substance: OXALIPLATIN
     Dosage: 85 MILLIGRAM/SQ. METER, 3 COURSES
     Route: 065
  6. PACLITAXEL. [Suspect]
     Active Substance: PACLITAXEL
     Indication: SQUAMOUS CELL CARCINOMA
     Dosage: UNK, WEEKLY
     Route: 065
  7. 5?FU [Suspect]
     Active Substance: FLUOROURACIL
     Dosage: 1600 MILLIGRAM/SQ. METER, OVER 46 HR, 3 COURSES
     Route: 065

REACTIONS (3)
  - Neuropathy peripheral [Unknown]
  - Hypersensitivity [Unknown]
  - Therapeutic product effect incomplete [Unknown]
